FAERS Safety Report 9637306 (Version 4)
Quarter: 2014Q1

REPORT INFORMATION
  Report Type: Spontaneous
  Country: US (occurrence: US)
  Receive Date: 20131022
  Receipt Date: 20140128
  Transmission Date: 20141002
  Serious: Yes (Hospitalization)
  Sender: FDA-Public Use
  Company Number: US-BIOGENIDEC-2013BI099467

PATIENT
  Age: 60 Year
  Sex: Male

DRUGS (13)
  1. TYSABRI [Suspect]
     Indication: MULTIPLE SCLEROSIS
     Route: 042
     Dates: start: 20130315, end: 20130909
  2. AVODART [Concomitant]
     Route: 048
  3. FLOMAX [Concomitant]
     Route: 048
  4. BACLOFEN [Concomitant]
     Route: 048
  5. VENLAFAXINE HCL [Concomitant]
     Route: 048
  6. CLONAZEPAM [Concomitant]
     Route: 048
  7. ATORVASTATIN CALCIUM [Concomitant]
     Route: 048
  8. AMITRIPTYLINE HCL [Concomitant]
     Route: 048
  9. COUMADIN [Concomitant]
     Route: 048
  10. ATENOLOL [Concomitant]
     Route: 048
  11. FLUTICASONE PROPIONATE [Concomitant]
     Route: 055
  12. TRAMADOL HCL [Concomitant]
     Indication: PAIN
  13. FENTANYL PATCH [Concomitant]
     Route: 023

REACTIONS (2)
  - Papillary thyroid cancer [Unknown]
  - Parathyroidectomy [Unknown]
